FAERS Safety Report 25396424 (Version 3)
Quarter: 2025Q3

REPORT INFORMATION
  Report Type: Spontaneous
  Country: US (occurrence: US)
  Receive Date: 20250604
  Receipt Date: 20250905
  Transmission Date: 20251020
  Serious: No
  Sender: LUPIN
  Company Number: US-LUPIN PHARMACEUTICALS INC.-2025-04529

PATIENT
  Sex: Female
  Weight: 48.526 kg

DRUGS (2)
  1. ALBUTEROL SULFATE [Suspect]
     Active Substance: ALBUTEROL SULFATE
     Indication: Chronic obstructive pulmonary disease
  2. ALBUTEROL SULFATE [Suspect]
     Active Substance: ALBUTEROL SULFATE
     Indication: Dyspnoea

REACTIONS (8)
  - Dyspnoea [Unknown]
  - Eating disorder [Unknown]
  - Feeling abnormal [Unknown]
  - Asthenia [Unknown]
  - Abdominal pain upper [Unknown]
  - Drug dose omission by device [Unknown]
  - Wrong technique in product usage process [Unknown]
  - Device deposit issue [Unknown]
